FAERS Safety Report 7744301-8 (Version None)
Quarter: 2011Q3

REPORT INFORMATION
  Report Type: 
  Country: None (occurrence: None)
  Receive Date: 20110912
  Receipt Date: 20110908
  Transmission Date: 20111222
  Serious: Yes (Hospitalization)
  Sender: FDA-Public Use
  Company Number: PHHO2011NL13703

PATIENT
  Sex: Male
  Weight: 91.2 kg

DRUGS (5)
  1. COTRIM [Suspect]
  2. CERTICAN [Suspect]
     Dosage: 2.5 MG, BID
     Route: 048
     Dates: start: 20110729, end: 20110817
  3. ESOMEPRAZOLE SODIUM [Suspect]
  4. TACROLIMUS [Suspect]
     Indication: RENAL TRANSPLANT
     Dosage: 2 MG, BID
     Dates: start: 20110426, end: 20110727
  5. CERTICAN [Suspect]
     Indication: RENAL TRANSPLANT
     Dosage: NO TREATMENT
     Dates: start: 20110727

REACTIONS (1)
  - KIDNEY TRANSPLANT REJECTION [None]
